FAERS Safety Report 18216712 (Version 2)
Quarter: 2020Q3

REPORT INFORMATION
  Report Type: Report from Study
  Country: IN (occurrence: IN)
  Receive Date: 20200901
  Receipt Date: 20200929
  Transmission Date: 20201103
  Serious: Yes (Death)
  Sender: FDA-Public Use
  Company Number: IN-ROCHE-2669159

PATIENT
  Age: 61 Year
  Sex: Male
  Weight: 74 kg

DRUGS (3)
  1. TOCILIZUMAB. [Suspect]
     Active Substance: TOCILIZUMAB
     Dosage: DOSE REGIMEN?6 MG/KG? 1 HR. INFUSION
     Route: 042
     Dates: start: 20200629
  2. TOCILIZUMAB. [Suspect]
     Active Substance: TOCILIZUMAB
     Dosage: DOSE REGIMEN?6 MG/KG? 1 HR. INFUSION
     Route: 042
     Dates: start: 20200629
  3. TOCILIZUMAB. [Suspect]
     Active Substance: TOCILIZUMAB
     Indication: COVID-19
     Dosage: DOSE REGIMEN?6 MG/KG1 HR. INFUSION
     Route: 042
     Dates: start: 20200629

REACTIONS (3)
  - Septic shock [Fatal]
  - Multiple organ dysfunction syndrome [Fatal]
  - Bradycardia [Fatal]

NARRATIVE: CASE EVENT DATE: 20200731
